FAERS Safety Report 9218345 (Version 5)
Quarter: 2014Q1

REPORT INFORMATION
  Report Type: Spontaneous
  Country: US (occurrence: US)
  Receive Date: 20130409
  Receipt Date: 20140103
  Transmission Date: 20141002
  Serious: No
  Sender: FDA-Public Use
  Company Number: US-BIOGENIDEC-2013BI030134

PATIENT
  Age: 41 Year
  Sex: Female

DRUGS (3)
  1. AVONEX [Suspect]
     Indication: MULTIPLE SCLEROSIS
     Route: 030
  2. AVONEX [Suspect]
     Indication: MULTIPLE SCLEROSIS
     Route: 030
     Dates: start: 19960610
  3. AVONEX [Suspect]
     Indication: MULTIPLE SCLEROSIS
     Route: 030
     Dates: start: 19970715, end: 19980715

REACTIONS (25)
  - Multiple sclerosis [Unknown]
  - Crying [Recovered/Resolved]
  - Mania [Recovered/Resolved]
  - Toothache [Unknown]
  - Temperature intolerance [Recovered/Resolved]
  - Local swelling [Not Recovered/Not Resolved]
  - Vertigo [Recovered/Resolved]
  - Nervousness [Unknown]
  - Hemiparesis [Not Recovered/Not Resolved]
  - Adverse drug reaction [Unknown]
  - Muscular weakness [Unknown]
  - Dizziness [Recovered/Resolved]
  - Multiple sclerosis relapse [Unknown]
  - Hot flush [Unknown]
  - Arthritis [Unknown]
  - Anxiety [Recovered/Resolved]
  - Pain [Unknown]
  - Pain in extremity [Not Recovered/Not Resolved]
  - Musculoskeletal pain [Unknown]
  - Neck pain [Unknown]
  - Hyperhidrosis [Recovered/Resolved]
  - Nausea [Recovered/Resolved]
  - Headache [Recovered/Resolved]
  - Feeling abnormal [Recovered/Resolved]
  - Influenza like illness [Recovered/Resolved]
